FAERS Safety Report 9257076 (Version 2)
Quarter: 2013Q2

REPORT INFORMATION
  Report Type: Spontaneous
  Country: NL (occurrence: None)
  Receive Date: 20130424
  Receipt Date: 20130426
  Transmission Date: 20140414
  Serious: Yes (Hospitalization)
  Sender: FDA-Public Use
  Company Number: 201304043

PATIENT
  Age: 59 Year
  Sex: Female

DRUGS (1)
  1. XIAPEX [Suspect]
     Indication: PRODUCT USED FOR UNKNOWN INDICATION
     Dosage: 1IN 1D. IM.
     Route: 030
     Dates: start: 20120626, end: 20120626

REACTIONS (3)
  - Breast cancer female [None]
  - Lymphadenopathy [None]
  - Pain in extremity [None]
